FAERS Safety Report 9551386 (Version 1)
Quarter: 2013Q3

REPORT INFORMATION
  Report Type: Spontaneous
  Country: US (occurrence: None)
  Receive Date: 20130724
  Receipt Date: 20130724
  Transmission Date: 20140515
  Serious: Yes (Hospitalization, Other)
  Sender: FDA-Public Use
  Company Number: PHEH2013US005214

PATIENT
  Age: 71 Year
  Sex: Female
  Weight: 53.5 kg

DRUGS (5)
  1. GLEEVEC (IMATINIB) UNKNOWN [Suspect]
     Indication: GASTROINTESTINAL STROMAL TUMOUR
     Route: 048
     Dates: start: 2001, end: 2009
  2. TRAMADOL [Concomitant]
  3. VITAMIN D (ERGOCALCIFEROL) [Concomitant]
  4. FISH OIL [Concomitant]
  5. FUROSEMIDE [Concomitant]

REACTIONS (4)
  - Pericardial effusion [None]
  - Pleural effusion [None]
  - Cardiac tamponade [None]
  - Generalised oedema [None]
